FAERS Safety Report 12439347 (Version 3)
Quarter: 2016Q3

REPORT INFORMATION
  Report Type: Report from Study
  Country: US (occurrence: US)
  Receive Date: 20160606
  Receipt Date: 20160824
  Transmission Date: 20161109
  Serious: Yes (Hospitalization, Other)
  Sender: FDA-Public Use
  Company Number: US-ELI_LILLY_AND_COMPANY-US201605010134

PATIENT
  Sex: Female

DRUGS (1)
  1. CYMBALTA [Suspect]
     Active Substance: DULOXETINE HYDROCHLORIDE
     Indication: PRODUCT USED FOR UNKNOWN INDICATION
     Dosage: 30 MG, QD
     Route: 048
     Dates: start: 19951204

REACTIONS (8)
  - Drug withdrawal syndrome [Unknown]
  - Self-injurious ideation [Unknown]
  - Suicide attempt [Unknown]
  - Suicidal ideation [Unknown]
  - Negative thoughts [Unknown]
  - Drug dose omission [Unknown]
  - Intentional self-injury [Unknown]
  - Psychiatric symptom [Unknown]
